FAERS Safety Report 24449544 (Version 2)
Quarter: 2024Q4

REPORT INFORMATION
  Report Type: Spontaneous
  Country: AT (occurrence: AT)
  Receive Date: 20241017
  Receipt Date: 20241025
  Transmission Date: 20250114
  Serious: Yes (Other)
  Sender: CELLTRION
  Company Number: AT-ABBVIE-5708502

PATIENT

DRUGS (6)
  1. HUMIRA [Suspect]
     Active Substance: ADALIMUMAB
     Indication: Arthritis
  2. HUMIRA [Suspect]
     Active Substance: ADALIMUMAB
     Indication: Spondylitis
  3. ADALIMUMAB [Suspect]
     Active Substance: ADALIMUMAB
     Indication: Arthritis
     Dosage: EVERY 2 WEEKS
     Route: 065
  4. ADALIMUMAB [Suspect]
     Active Substance: ADALIMUMAB
     Indication: Spondylitis
  5. IXEKIZUMAB [Concomitant]
     Active Substance: IXEKIZUMAB
     Indication: Product used for unknown indication
     Dosage: 80 MILLIGRAM, EVERY 4 WEEKS (160 MG)
  6. CERTOLIZUMAB PEGOL [Concomitant]
     Active Substance: CERTOLIZUMAB PEGOL
     Indication: Product used for unknown indication

REACTIONS (13)
  - Psoriatic arthropathy [Unknown]
  - Shoulder operation [Unknown]
  - Shoulder operation [Unknown]
  - Hip fracture [Recovering/Resolving]
  - Musculoskeletal discomfort [Unknown]
  - Muscle disorder [Recovering/Resolving]
  - Spinal pain [Unknown]
  - Skin exfoliation [Unknown]
  - Spondylitis [Recovering/Resolving]
  - Dermatitis psoriasiform [Unknown]
  - Musculoskeletal disorder [Recovering/Resolving]
  - Arthritis [Recovering/Resolving]
  - Arthralgia [Unknown]
